FAERS Safety Report 9934479 (Version 1)
Quarter: 2014Q1

REPORT INFORMATION
  Report Type: Spontaneous
  Country: BG (occurrence: BG)
  Receive Date: 20140228
  Receipt Date: 20140228
  Transmission Date: 20141002
  Serious: Yes (Hospitalization)
  Sender: FDA-Public Use
  Company Number: BG-UCBSA-113131

PATIENT
  Age: 70 Year
  Sex: Female

DRUGS (3)
  1. CIMZIA [Suspect]
     Indication: RHEUMATOID ARTHRITIS
     Route: 058
     Dates: start: 201309
  2. PARACETAMOL [Concomitant]
     Indication: NASOPHARYNGITIS
     Route: 048
  3. METAMIZOLE SODIUM [Concomitant]
     Indication: NASOPHARYNGITIS
     Route: 048

REACTIONS (1)
  - Henoch-Schonlein purpura [Recovered/Resolved]
